FAERS Safety Report 9925358 (Version 1)
Quarter: 2014Q1

REPORT INFORMATION
  Report Type: Spontaneous
  Country: NO (occurrence: NO)
  Receive Date: 20140226
  Receipt Date: 20140226
  Transmission Date: 20141002
  Serious: Yes (Hospitalization)
  Sender: FDA-Public Use
  Company Number: NO-PFIZER INC-2014052105

PATIENT
  Age: 33 Year
  Sex: Male

DRUGS (2)
  1. LYRICA [Suspect]
     Indication: ANXIETY
     Dosage: 600 MG, DAILY
     Dates: end: 20140126
  2. SUBUTEX [Concomitant]
     Indication: DRUG WITHDRAWAL MAINTENANCE THERAPY

REACTIONS (4)
  - Feeling cold [Recovered/Resolved]
  - Muscle tightness [Recovered/Resolved]
  - Drug withdrawal syndrome [Recovered/Resolved]
  - Anxiety [Recovered/Resolved]
